FAERS Safety Report 23778231 (Version 1)
Quarter: 2024Q2

REPORT INFORMATION
  Report Type: Spontaneous
  Country: AU (occurrence: AU)
  Receive Date: 20240424
  Receipt Date: 20240424
  Transmission Date: 20240716
  Serious: Yes (Other)
  Sender: FDA-Public Use
  Company Number: AU-Zuellig Korea-ATNAHS20240401162

PATIENT
  Age: 66 Year
  Sex: Female

DRUGS (5)
  1. VALIUM [Suspect]
     Active Substance: DIAZEPAM
     Indication: Product used for unknown indication
  2. MIRTAZAPINE [Suspect]
     Active Substance: MIRTAZAPINE
     Indication: Product used for unknown indication
  3. LEXAPRO [Suspect]
     Active Substance: ESCITALOPRAM OXALATE
     Indication: Product used for unknown indication
  4. RISPERIDONE [Suspect]
     Active Substance: RISPERIDONE
     Indication: Product used for unknown indication
  5. TEMAZEPAM [Suspect]
     Active Substance: TEMAZEPAM
     Indication: Product used for unknown indication

REACTIONS (19)
  - Hyperthyroidism [Unknown]
  - Autoscopy [Unknown]
  - Blood iron decreased [Unknown]
  - Fat tissue increased [Unknown]
  - Hypertension [Unknown]
  - Patient elopement [Unknown]
  - Weight decreased [Unknown]
  - Hyponatraemia [Unknown]
  - Weight increased [Unknown]
  - Taste disorder [Unknown]
  - Agitation [Unknown]
  - Abnormal behaviour [Unknown]
  - Irritability [Unknown]
  - Insomnia [Unknown]
  - Confusional state [Unknown]
  - Constipation [Unknown]
  - Oedema [Unknown]
  - Restlessness [Unknown]
  - Dry mouth [Unknown]
